FAERS Safety Report 9880013 (Version 3)
Quarter: 2014Q2

REPORT INFORMATION
  Report Type: Report from Study
  Country: US (occurrence: US)
  Receive Date: 20140207
  Receipt Date: 20140409
  Transmission Date: 20141212
  Serious: Yes (Hospitalization, Other)
  Sender: FDA-Public Use
  Company Number: US-ROCHE-1256376

PATIENT
  Age: 51 Year
  Sex: Male

DRUGS (2)
  1. PEGASYS [Suspect]
     Indication: CHRONIC HEPATITIS C
     Dosage: PATIENT WAS IN WEEK 11 OF 24-48 WEEK THERAPY
     Route: 058
     Dates: start: 20130601, end: 20131222
  2. COPEGUS [Suspect]
     Indication: CHRONIC HEPATITIS C
     Dosage: FREQUENCY : 2QAM, 2QPM
     Route: 048
     Dates: start: 20130601, end: 20131222

REACTIONS (6)
  - Arterial occlusive disease [Unknown]
  - Visual acuity reduced [Not Recovered/Not Resolved]
  - Pain [Not Recovered/Not Resolved]
  - Lacrimation increased [Not Recovered/Not Resolved]
  - Eye pain [Not Recovered/Not Resolved]
  - Eye disorder [Not Recovered/Not Resolved]
